FAERS Safety Report 5503539-0 (Version None)
Quarter: 2007Q4

REPORT INFORMATION
  Report Type: 
  Country: None (occurrence: None)
  Receive Date: 20071029
  Receipt Date: 20071018
  Transmission Date: 20080405
  Serious: Yes (Death, Hospitalization)
  Sender: FDA-Public Use
  Company Number: 2007AL004185

PATIENT
  Age: 60 Year
  Sex: Male

DRUGS (4)
  1. METFORMIN HYDROCHLORIDE [Suspect]
     Indication: TYPE 2 DIABETES MELLITUS
     Dosage: 850 MG; QID
  2. KLYX [Concomitant]
  3. ACETYLSALICYLIC ACID SRT [Concomitant]
  4. ALCOHOL [Concomitant]

REACTIONS (5)
  - ACUTE ABDOMEN [None]
  - CARDIAC ARREST [None]
  - DRUG ABUSE [None]
  - LACTIC ACIDOSIS [None]
  - OVERDOSE [None]
